FAERS Safety Report 11239026 (Version 1)
Quarter: 2015Q3

REPORT INFORMATION
  Report Type: Spontaneous
  Country: US (occurrence: None)
  Receive Date: 20150701
  Receipt Date: 20150701
  Transmission Date: 20151125
  Serious: No
  Sender: FDA-Public Use
  Company Number: None

PATIENT
  Age: 72 Year
  Sex: Female
  Weight: 79.38 kg

DRUGS (11)
  1. SYNTHROID [Concomitant]
     Active Substance: LEVOTHYROXINE SODIUM
  2. VINCLLE DOT [Concomitant]
  3. ASPIRIN. [Concomitant]
     Active Substance: ASPIRIN
  4. ARENDS [Concomitant]
  5. LEVOFLOXACIN (GENERIC FOR LEVAQUIN) ZYDUS [Suspect]
     Active Substance: LEVOFLOXACIN
     Indication: NASOPHARYNGITIS
     Route: 048
     Dates: start: 20150316, end: 20150318
  6. COSAMIN DS [Concomitant]
  7. GLUCOSAMINE HCL/CHONDROITIN SULFATE [Concomitant]
  8. SIMVASTATIN. [Concomitant]
     Active Substance: SIMVASTATIN
  9. MULTI VITAMIN [Concomitant]
     Active Substance: VITAMINS
  10. LISINOPRIL HCTZ [Concomitant]
     Active Substance: HYDROCHLOROTHIAZIDE\LISINOPRIL
  11. CALCIUM + D [Concomitant]

REACTIONS (4)
  - Vision blurred [None]
  - Joint swelling [None]
  - Joint crepitation [None]
  - Dysphonia [None]

NARRATIVE: CASE EVENT DATE: 20150317
